FAERS Safety Report 17549188 (Version 1)
Quarter: 2020Q1

REPORT INFORMATION
  Report Type: Spontaneous
  Country: US (occurrence: US)
  Receive Date: 20200317
  Receipt Date: 20200317
  Transmission Date: 20200409
  Serious: No
  Sender: FDA-Public Use
  Company Number: US-LUPIN PHARMACEUTICALS INC.-2020-01152

PATIENT
  Age: 64 Year
  Sex: Female
  Weight: 88.44 kg

DRUGS (2)
  1. DESVENLAFAXINE EXTENDED RELEASE TABLET 100MG [Suspect]
     Active Substance: DESVENLAFAXINE SUCCINATE
     Indication: MAJOR DEPRESSION
     Dosage: 100 MILLIGRAM, QD
     Route: 048
     Dates: start: 201911, end: 20200212
  2. BUSPIRONE [Concomitant]
     Active Substance: BUSPIRONE HYDROCHLORIDE
     Indication: MAJOR DEPRESSION
     Dosage: 5 MILLIGRAM, PRN (HALF A TABLET (5MG))
     Route: 048

REACTIONS (6)
  - Influenza [Unknown]
  - Bedridden [Unknown]
  - Respiratory disorder [Unknown]
  - Asthenia [Recovered/Resolved]
  - Product quality issue [Unknown]
  - Nasopharyngitis [Unknown]

NARRATIVE: CASE EVENT DATE: 201911
